FAERS Safety Report 9236720 (Version 3)
Quarter: 2013Q3

REPORT INFORMATION
  Report Type: Spontaneous
  Country: FR (occurrence: FR)
  Receive Date: 20130417
  Receipt Date: 20130924
  Transmission Date: 20140515
  Serious: Yes (Hospitalization)
  Sender: FDA-Public Use
  Company Number: FR-ROCHE-1214452

PATIENT
  Age: 47 Year
  Sex: Male

DRUGS (9)
  1. APRANAX [Suspect]
     Indication: SCIATICA
     Route: 048
     Dates: start: 20121130, end: 20121222
  2. TEGRETOL [Suspect]
     Indication: SCIATICA
     Route: 048
     Dates: start: 20121105, end: 20121222
  3. VISIPAQUE [Suspect]
     Indication: PRODUCT USED FOR UNKNOWN INDICATION
     Route: 048
     Dates: start: 20121207
  4. HEPARINE CALCIQUE [Suspect]
     Indication: PROPHYLAXIS
     Route: 042
     Dates: start: 20121207, end: 20121220
  5. MEDROL [Suspect]
     Indication: SCIATICA
     Route: 048
     Dates: start: 20121105
  6. MEDROL [Suspect]
     Route: 048
  7. MEDROL [Suspect]
     Route: 048
     Dates: end: 20121222
  8. KENACORT [Concomitant]
     Indication: POLYMORPHIC LIGHT ERUPTION
     Route: 065
     Dates: start: 2003
  9. PLAQUENIL [Concomitant]
     Indication: POLYMORPHIC LIGHT ERUPTION
     Route: 065
     Dates: start: 2003

REACTIONS (3)
  - Dermatitis exfoliative [Recovered/Resolved]
  - Eosinophilia [Recovered/Resolved]
  - Pruritus [Recovered/Resolved]
